FAERS Safety Report 17516896 (Version 1)
Quarter: 2020Q1

REPORT INFORMATION
  Report Type: Spontaneous
  Country: DE (occurrence: DE)
  Receive Date: 20200309
  Receipt Date: 20200309
  Transmission Date: 20200409
  Serious: Yes (Hospitalization, Other)
  Sender: FDA-Public Use
  Company Number: DE-MYLANLABS-2020M1023643

PATIENT
  Age: 51 Year
  Sex: Female
  Weight: 75 kg

DRUGS (6)
  1. BUDESONIDE. [Concomitant]
     Active Substance: BUDESONIDE
     Dosage: 2 X 400
     Dates: start: 201504
  2. BUDESONIDE. [Concomitant]
     Active Substance: BUDESONIDE
     Dosage: 200 1 X 1
     Dates: start: 201512
  3. ASPIRIN                            /00002701/ [Concomitant]
     Active Substance: ASPIRIN
     Dosage: UNK
     Dates: end: 201506
  4. FORMOTEROL [Suspect]
     Active Substance: FORMOTEROL
     Dosage: 2 X 1 AND AS NEEDED
     Route: 055
     Dates: start: 201509
  5. BUDESONIDE. [Concomitant]
     Active Substance: BUDESONIDE
     Dosage: 400 2 X 1
     Dates: start: 201509
  6. FORMOTEROL [Suspect]
     Active Substance: FORMOTEROL
     Indication: ASTHMA
     Dosage: UNK UNK, PRN IF REQUIRED
     Route: 055
     Dates: start: 201506

REACTIONS (5)
  - Cyanosis [Unknown]
  - Respiratory tract infection [Unknown]
  - Cold sweat [Unknown]
  - Asthma [Unknown]
  - Headache [Unknown]

NARRATIVE: CASE EVENT DATE: 201509
